FAERS Safety Report 8393640-9 (Version None)
Quarter: 2012Q2

REPORT INFORMATION
  Report Type: 
  Country: None (occurrence: None)
  Receive Date: 20120530
  Receipt Date: 20120522
  Transmission Date: 20120825
  Serious: Yes (Hospitalization)
  Sender: FDA-Public Use
  Company Number: 2008BI011401

PATIENT
  Age: 51 Year
  Sex: Female
  Weight: 52 kg

DRUGS (3)
  1. AVONEX [Suspect]
     Indication: MULTIPLE SCLEROSIS
     Route: 030
  2. AVONEX [Suspect]
     Route: 030
     Dates: start: 20040101, end: 20080328
  3. AVONEX [Suspect]
     Route: 030
     Dates: start: 20030410, end: 20040101

REACTIONS (1)
  - APLASTIC ANAEMIA [None]
